FAERS Safety Report 4528606-X (Version None)
Quarter: 2004Q4

REPORT INFORMATION
  Report Type: 
  Country: None (occurrence: None)
  Receive Date: 20041216
  Receipt Date: 20041118
  Transmission Date: 20050328
  Serious: Yes (Hospitalization, Disabling, Other)
  Sender: FDA-Public Use
  Company Number: PHEH2004US12533

PATIENT
  Age: 76 Year
  Sex: Male
  Weight: 66 kg

DRUGS (3)
  1. ADVAIR DISKUS 100/50 [Concomitant]
     Indication: ASTHMA
     Dosage: ONE PUFF , BID
  2. FLONASE [Concomitant]
     Indication: RHINITIS ALLERGIC
     Dosage: TWO SPRAYS DAILY
  3. DIOVAN HCT [Suspect]
     Indication: ESSENTIAL HYPERTENSION
     Dosage: 80/12.5 MG DAILY
     Route: 048
     Dates: start: 20040908, end: 20041110

REACTIONS (7)
  - ASTHMA [None]
  - DEEP VEIN THROMBOSIS [None]
  - EOSINOPHIL COUNT INCREASED [None]
  - LEUKOCYTOCLASTIC VASCULITIS [None]
  - NEUROPATHY PERIPHERAL [None]
  - OEDEMA PERIPHERAL [None]
  - VASCULITIS [None]
